FAERS Safety Report 19099592 (Version 1)
Quarter: 2021Q2

REPORT INFORMATION
  Report Type: Spontaneous
  Country: US (occurrence: US)
  Receive Date: 20210406
  Receipt Date: 20210406
  Transmission Date: 20210717
  Serious: No
  Sender: FDA-Public Use
  Company Number: US-SUNOVION-2021SUN000978

PATIENT
  Age: 56 Year
  Sex: Female

DRUGS (2)
  1. LONHALA MAGNAIR [Suspect]
     Active Substance: GLYCOPYRROLATE
     Indication: CHRONIC OBSTRUCTIVE PULMONARY DISEASE
     Dosage: 15 ?G 5 TIMES A DAY
     Route: 055
     Dates: end: 20210315
  2. LONHALA MAGNAIR [Suspect]
     Active Substance: GLYCOPYRROLATE
     Indication: EMPHYSEMA

REACTIONS (6)
  - Device issue [Unknown]
  - Off label use [Unknown]
  - Product use issue [Unknown]
  - Cough [Not Recovered/Not Resolved]
  - Product dose omission issue [Unknown]
  - Device power source issue [Unknown]

NARRATIVE: CASE EVENT DATE: 20210315
